FAERS Safety Report 9620618 (Version 1)
Quarter: 2013Q4

REPORT INFORMATION
  Report Type: Spontaneous
  Country: CH (occurrence: CH)
  Receive Date: 20131015
  Receipt Date: 20131015
  Transmission Date: 20140711
  Serious: Yes (Other)
  Sender: FDA-Public Use
  Company Number: CH-JNJFOC-20131005188

PATIENT
  Age: 44 Year
  Sex: Female

DRUGS (1)
  1. IBUPROFEN [Suspect]
     Indication: NASOPHARYNGITIS
     Route: 065

REACTIONS (4)
  - Corrosive gastritis [Unknown]
  - Dyspepsia [Unknown]
  - Abdominal pain upper [Unknown]
  - Off label use [Unknown]
